FAERS Safety Report 12011493 (Version 2)
Quarter: 2016Q1

REPORT INFORMATION
  Report Type: Spontaneous
  Country: US (occurrence: US)
  Receive Date: 20160205
  Receipt Date: 20160307
  Transmission Date: 20160526
  Serious: No
  Sender: FDA-Public Use
  Company Number: US-MEDA-2016020002

PATIENT
  Age: 74 Year
  Sex: Female
  Weight: 75 kg

DRUGS (20)
  1. AZELASTINE HYDROCHLORIDE. [Concomitant]
     Active Substance: AZELASTINE HYDROCHLORIDE
     Indication: SINUS CONGESTION
  2. PREMARIN [Concomitant]
     Active Substance: ESTROGENS, CONJUGATED
  3. PREDNISONE. [Concomitant]
     Active Substance: PREDNISONE
     Indication: RHINITIS PERENNIAL
  4. OMNARIS [Concomitant]
     Active Substance: CICLESONIDE
  5. LYRICA [Concomitant]
     Active Substance: PREGABALIN
  6. FLONASE [Concomitant]
     Active Substance: FLUTICASONE PROPIONATE
     Indication: RHINITIS PERENNIAL
  7. ALLEGRA-D [Concomitant]
     Active Substance: FEXOFENADINE\PSEUDOEPHEDRINE
     Indication: SINUS CONGESTION
  8. VIVELLE [Concomitant]
     Active Substance: ESTRADIOL
  9. PATADAY [Concomitant]
     Active Substance: OLOPATADINE HYDROCHLORIDE
     Route: 047
  10. DYMISTA [Suspect]
     Active Substance: AZELASTINE HYDROCHLORIDE\FLUTICASONE PROPIONATE
     Indication: RHINITIS PERENNIAL
     Dates: start: 201601
  11. AZELASTINE HYDROCHLORIDE. [Concomitant]
     Active Substance: AZELASTINE HYDROCHLORIDE
     Indication: RHINITIS PERENNIAL
  12. CYCLOBENZAPRINE [Concomitant]
     Active Substance: CYCLOBENZAPRINE
  13. INDOMETHACIN. [Concomitant]
     Active Substance: INDOMETHACIN
  14. DYMISTA [Suspect]
     Active Substance: AZELASTINE HYDROCHLORIDE\FLUTICASONE PROPIONATE
     Indication: SINUS CONGESTION
     Dates: start: 201601
  15. ASTELIN [Concomitant]
     Active Substance: AZELASTINE HYDROCHLORIDE
  16. ALLEGRA-D [Concomitant]
     Active Substance: FEXOFENADINE\PSEUDOEPHEDRINE
     Indication: RHINITIS PERENNIAL
  17. PROMETHAZINE/CODEINE [Concomitant]
     Active Substance: CODEINE\PROMETHAZINE
  18. FLONASE [Concomitant]
     Active Substance: FLUTICASONE PROPIONATE
     Indication: SINUS CONGESTION
  19. PREDNISONE. [Concomitant]
     Active Substance: PREDNISONE
     Indication: SINUS CONGESTION
  20. ATROVENT [Concomitant]
     Active Substance: IPRATROPIUM BROMIDE
     Indication: RHINORRHOEA

REACTIONS (6)
  - Dyspnoea [Not Recovered/Not Resolved]
  - Drug ineffective for unapproved indication [Unknown]
  - Cough [Unknown]
  - Off label use [Unknown]
  - Upper-airway cough syndrome [Not Recovered/Not Resolved]
  - Throat irritation [Unknown]

NARRATIVE: CASE EVENT DATE: 201601
